FAERS Safety Report 9248951 (Version 1)
Quarter: 2013Q1

REPORT INFORMATION
  Report Type: Spontaneous
  Country: US (occurrence: None)
  Receive Date: 20130305
  Receipt Date: 20130305
  Transmission Date: 20140127
  Serious: Yes (Other)
  Sender: FDA-Public Use
  Company Number: 163-21880-12091806

PATIENT
  Age: 65 Year
  Sex: Female

DRUGS (6)
  1. REVLIMID [Suspect]
     Indication: PLASMA CELL MYELOMA
     Dosage: 21 IN 28 D
     Route: 048
     Dates: start: 20120220, end: 20120910
  2. ASPIRIN EC(ACETYLSALICYLIC ACID)(TABLETS) [Concomitant]
  3. DEXAMETHASONE(DEXAMETHASONE)(TABLETS) [Concomitant]
  4. ACYCLOVIR(ACICLOVIR)(CAPSULES) [Concomitant]
  5. POTASSIUM ACETATE(POTASSIUM ACETATE) (UNKNOWN) [Concomitant]
  6. POTASSIUM BENZOATE(POTASSIUM) (UNKNOWN) [Concomitant]

REACTIONS (3)
  - Drug ineffective [None]
  - Blood immunoglobulin A increased [None]
  - Light chain analysis increased [None]
